FAERS Safety Report 9100689 (Version 1)
Quarter: 2013Q1

REPORT INFORMATION
  Report Type: Spontaneous
  Country: AU (occurrence: AU)
  Receive Date: 20130214
  Receipt Date: 20130214
  Transmission Date: 20140127
  Serious: Yes (Other)
  Sender: FDA-Public Use
  Company Number: PHHY2012AU115143

PATIENT
  Sex: Female

DRUGS (1)
  1. GENTEAL [Suspect]
     Indication: DRY EYE
     Dosage: UNK UKN, UNK
     Dates: start: 20121211, end: 20121211

REACTIONS (2)
  - Foreign body sensation in eyes [Recovered/Resolved]
  - Lacrimation increased [Recovered/Resolved]
